FAERS Safety Report 10235457 (Version 1)
Quarter: 2014Q2

REPORT INFORMATION
  Report Type: Spontaneous
  Country: SE (occurrence: None)
  Receive Date: 20140611
  Receipt Date: 20140611
  Transmission Date: 20141212
  Serious: Yes (Death)
  Sender: FDA-Public Use
  Company Number: SYM-2014-17017

PATIENT
  Age: 27 Year
  Sex: Male

DRUGS (6)
  1. VOXRA [Suspect]
     Indication: PRODUCT USED FOR UNKNOWN INDICATION
  2. STESOLID (DIAZEPAM) (DIAZEPAM) [Concomitant]
     Indication: PRODUCT USED FOR UNKNOWN INDICATION
  3. MIRTAZAPINE (MIRTAZAPINE) [Concomitant]
  4. PROPAVAN (PROPIOMAZINE MALEATE) (PROPIOMAZINE MALEATE) [Concomitant]
  5. PALEXIA (TAPENTADOL HYDROCHLORIDE) (TAPENTADOL HYDROCHLORIDE) [Concomitant]
  6. GABAPENTIN (GABAPENTIN) [Concomitant]

REACTIONS (2)
  - Toxicity to various agents [None]
  - Drug level increased [None]
